FAERS Safety Report 4594931-X (Version None)
Quarter: 2005Q1

REPORT INFORMATION
  Report Type: 
  Country: None (occurrence: None)
  Receive Date: 20050223
  Receipt Date: 20050207
  Transmission Date: 20050727
  Serious: Yes (Hospitalization)
  Sender: FDA-Public Use
  Company Number: 2005026705

PATIENT
  Age: 5 Year
  Sex: Female

DRUGS (3)
  1. PHENYTOIN [Suspect]
     Indication: STATUS EPILEPTICUS
     Dosage: ORAL
     Route: 048
     Dates: start: 20040916
  2. CARBAMAZEPINE [Concomitant]
  3. VALPROIC ACID [Concomitant]

REACTIONS (7)
  - ABDOMINAL DISTENSION [None]
  - ABDOMINAL PAIN [None]
  - DRUG INTERACTION POTENTIATION [None]
  - FLATULENCE [None]
  - GASTROINTESTINAL DISORDER [None]
  - OVERDOSE [None]
  - VOMITING [None]
